FAERS Safety Report 5035026-0 (Version None)
Quarter: 2006Q2

REPORT INFORMATION
  Report Type: 
  Country: None (occurrence: None)
  Receive Date: 20060519
  Receipt Date: 20060315
  Transmission Date: 20061013
  Serious: No
  Sender: FDA-Public Use
  Company Number: TPA2006A00458

PATIENT
  Age: 57 Year
  Sex: Male
  Weight: 154.223 kg

DRUGS (16)
  1. ROZEREM [Suspect]
     Indication: INSOMNIA
     Dosage: 8 MG, HS, PER ORAL
     Route: 048
     Dates: start: 20060115, end: 20060122
  2. ROZEREM [Suspect]
     Indication: INSOMNIA
     Dosage: 8 MG, HS, PER ORAL
     Route: 048
     Dates: start: 20060215
  3. AMBIEN [Suspect]
     Indication: INSOMNIA
     Dosage: 10 MG, HS, PER ORAL
     Route: 048
  4. CYCLOSPORINE (CICLOSPORIN) (75 MILLIGRAM) [Concomitant]
  5. PREDNISONE (PREDNISONE) (10 MILLIGRAM) [Concomitant]
  6. CELLCEPT (MYCOPHENOLATE MOFETIL) (500 MILLIGRAM) [Concomitant]
  7. PREVACID [Concomitant]
  8. AVAPRO (IRBESARTAN) (300 MILLIGRAM) [Concomitant]
  9. LIPITOR [Concomitant]
  10. COREG (CARVEDILOL) (25 MILLIGRAM) [Concomitant]
  11. CATAPRES (CLONIDINE) (0.3 MILLIGRAM) [Concomitant]
  12. FUROSEMIDE (FUROSEMIDE) (80 MILLIGRAM) [Concomitant]
  13. NIASPAN (NICOTINIC ACID) (1000 MILLIGRAM) [Concomitant]
  14. CARBIDOPA AND LEVODOPA [Concomitant]
  15. ZOLOFT [Concomitant]
  16. ALLOPURINOL (ALLOPURINOL) (30 MILLIGRAM) [Concomitant]

REACTIONS (2)
  - INSOMNIA [None]
  - SOMNOLENCE [None]
